FAERS Safety Report 20906136 (Version 1)
Quarter: 2022Q2

REPORT INFORMATION
  Report Type: Spontaneous
  Country: US (occurrence: US)
  Receive Date: 20220602
  Receipt Date: 20220602
  Transmission Date: 20220721
  Serious: No
  Sender: FDA-Public Use
  Company Number: US-COLLEGIUM PHARMACEUTICAL, INC.-2021CGM00600

PATIENT
  Age: 51 Year
  Sex: Female

DRUGS (6)
  1. XTAMPZA ER [Suspect]
     Active Substance: OXYCODONE
     Dosage: 27 MG
     Dates: start: 202104
  2. XTAMPZA ER [Suspect]
     Active Substance: OXYCODONE
     Dosage: 18 MG, 1X/DAY
     Dates: start: 2021
  3. CYMBALTA [Concomitant]
     Active Substance: DULOXETINE HYDROCHLORIDE
  4. GABAPENTIN [Concomitant]
     Active Substance: GABAPENTIN
  5. TIZANIDINE [Concomitant]
     Active Substance: TIZANIDINE
  6. SHORT ACTING OXYCODONE [Concomitant]

REACTIONS (2)
  - Urticaria [Unknown]
  - Rash [Unknown]

NARRATIVE: CASE EVENT DATE: 20210101
